FAERS Safety Report 22852367 (Version 3)
Quarter: 2023Q4

REPORT INFORMATION
  Report Type: Report from Study
  Country: CA (occurrence: CA)
  Receive Date: 20230823
  Receipt Date: 20231110
  Transmission Date: 20240109
  Serious: No
  Sender: FDA-Public Use
  Company Number: CA-SANDOZ-SDZ2023CA013602

PATIENT
  Sex: Female

DRUGS (1)
  1. ERELZI [Suspect]
     Active Substance: ETANERCEPT-SZZS
     Indication: Rheumatoid arthritis
     Dosage: 50 MG
     Route: 058
     Dates: start: 20230501

REACTIONS (7)
  - Pain in extremity [Not Recovered/Not Resolved]
  - Skin haemorrhage [Unknown]
  - Contusion [Unknown]
  - Headache [Unknown]
  - Injection site pain [Unknown]
  - Drug ineffective [Unknown]
  - Dry skin [Unknown]
